FAERS Safety Report 8115621-2 (Version None)
Quarter: 2012Q1

REPORT INFORMATION
  Report Type: 
  Country: None (occurrence: None)
  Receive Date: 20120206
  Receipt Date: 20120131
  Transmission Date: 20120608
  Serious: Yes (Other)
  Sender: FDA-Public Use
  Company Number: US-SANOFI-AVENTIS-2012SA006770

PATIENT
  Sex: Female

DRUGS (3)
  1. LANTUS [Suspect]
     Dosage: DOSE:60 UNIT(S)
     Route: 058
  2. NOVOLOG [Concomitant]
  3. SOLOSTAR [Suspect]

REACTIONS (3)
  - CEREBROVASCULAR ACCIDENT [None]
  - INCORRECT STORAGE OF DRUG [None]
  - DEVICE MALFUNCTION [None]
